FAERS Safety Report 22227146 (Version 3)
Quarter: 2023Q2

REPORT INFORMATION
  Report Type: Report from Study
  Country: CA (occurrence: CA)
  Receive Date: 20230419
  Receipt Date: 20230522
  Transmission Date: 20230722
  Serious: Yes (Hospitalization)
  Sender: FDA-Public Use
  Company Number: CA-JNJFOC-20230422426

PATIENT
  Age: 59 Year
  Sex: Female

DRUGS (23)
  1. EPOPROSTENOL SODIUM [Suspect]
     Active Substance: EPOPROSTENOL SODIUM
     Indication: Pulmonary hypertension
     Route: 042
     Dates: start: 20210917
  2. MACITENTAN [Suspect]
     Active Substance: MACITENTAN
     Indication: Pulmonary hypertension
     Route: 048
     Dates: start: 20200130
  3. REVATIO [Concomitant]
     Active Substance: SILDENAFIL CITRATE
  4. METOPROLOL [Concomitant]
     Active Substance: METOPROLOL
  5. LEVOTHYROXINE [Concomitant]
     Active Substance: LEVOTHYROXINE
  6. ROSUVASTATIN [Concomitant]
     Active Substance: ROSUVASTATIN
  7. OZEMPIC [Concomitant]
     Active Substance: SEMAGLUTIDE
  8. ENOXAPARIN [Concomitant]
     Active Substance: ENOXAPARIN
  9. AMITRIPTYLINE [Concomitant]
     Active Substance: AMITRIPTYLINE
  10. CALCIUM CARBONATE [Concomitant]
     Active Substance: CALCIUM CARBONATE
  11. LOPERAMIDE [Concomitant]
     Active Substance: LOPERAMIDE
  12. PANTOPRAZOLE [Concomitant]
     Active Substance: PANTOPRAZOLE
  13. COLCHICINE [Concomitant]
     Active Substance: COLCHICINE
  14. HYDROMORPHONE [Concomitant]
     Active Substance: HYDROMORPHONE
  15. MAGNESIUM [MAGNESIUM HYDROXIDE] [Concomitant]
  16. ONDANSETRON [Concomitant]
     Active Substance: ONDANSETRON
  17. CEFTRIAXONE [Concomitant]
     Active Substance: CEFTRIAXONE
  18. FUROSEMIDE [Concomitant]
     Active Substance: FUROSEMIDE
  19. ERGOCALCIFEROL [Concomitant]
     Active Substance: ERGOCALCIFEROL
  20. ASPIRIN [Concomitant]
     Active Substance: ASPIRIN
  21. MELATONIN [Concomitant]
     Active Substance: MELATONIN
  22. CITALOPRAM [Concomitant]
     Active Substance: CITALOPRAM HYDROBROMIDE
  23. SPIRONOLACTONE [Concomitant]
     Active Substance: SPIRONOLACTONE

REACTIONS (5)
  - Device dislocation [Recovering/Resolving]
  - Device related infection [Recovering/Resolving]
  - Chills [Unknown]
  - Fatigue [Unknown]
  - Product administration interrupted [Unknown]

NARRATIVE: CASE EVENT DATE: 20230407
